FAERS Safety Report 10213584 (Version 1)
Quarter: 2014Q2

REPORT INFORMATION
  Report Type: Spontaneous
  Country: US (occurrence: None)
  Receive Date: 20140529
  Receipt Date: 20140529
  Transmission Date: 20141212
  Serious: No
  Sender: FDA-Public Use
  Company Number: 14AE023

PATIENT
  Age: 56 Year
  Sex: Male

DRUGS (4)
  1. EQUATE IBUPROFEN [Suspect]
     Indication: PROCEDURAL PAIN
     Dosage: 12-16 DAILY/BY MOUTH
     Route: 048
     Dates: start: 20140301, end: 20140416
  2. TAMSULOSIN [Concomitant]
  3. CIPROFLOXACIN [Concomitant]
  4. OMEPRAZOLE [Concomitant]

REACTIONS (5)
  - Haematochezia [None]
  - Blood urine present [None]
  - Constipation [None]
  - Dysuria [None]
  - Decreased appetite [None]
